FAERS Safety Report 14303693 (Version 1)
Quarter: 2017Q4

REPORT INFORMATION
  Report Type: Spontaneous
  Country: FR (occurrence: FR)
  Receive Date: 20171219
  Receipt Date: 20171219
  Transmission Date: 20180321
  Serious: Yes (Hospitalization, Other)
  Sender: FDA-Public Use
  Company Number: FR-OTSUKA-2015_012909

PATIENT
  Sex: Male
  Weight: 81 kg

DRUGS (2)
  1. ABILIFY MAINTENA [Suspect]
     Active Substance: ARIPIPRAZOLE
     Indication: SCHIZOPHRENIA
     Dosage: 400 MG, QM
     Route: 030
  2. ABILIFY [Suspect]
     Active Substance: ARIPIPRAZOLE
     Indication: SCHIZOPHRENIA
     Dosage: 20 MG, QD
     Route: 048
     Dates: start: 201502

REACTIONS (5)
  - Delirium [Recovered/Resolved]
  - Psychotic symptom [Recovered/Resolved]
  - Drug effect decreased [Unknown]
  - Schizophrenia [Recovered/Resolved]
  - Psychotic disorder [Recovered/Resolved]
